FAERS Safety Report 9844539 (Version 1)
Quarter: 2014Q1

REPORT INFORMATION
  Report Type: Spontaneous
  Country: US (occurrence: None)
  Receive Date: 20140123
  Receipt Date: 20140123
  Transmission Date: 20141002
  Serious: Yes (Disabling)
  Sender: FDA-Public Use
  Company Number: None

PATIENT
  Age: 32 Year
  Sex: Male
  Weight: 86.18 kg

DRUGS (1)
  1. RISPERIDONE [Suspect]
     Indication: SCHIZOAFFECTIVE DISORDER
     Route: 048
     Dates: start: 20140109, end: 20140119

REACTIONS (8)
  - Vomiting [None]
  - Nausea [None]
  - Aphagia [None]
  - Weight decreased [None]
  - Libido decreased [None]
  - Restlessness [None]
  - Groin abscess [None]
  - Wound secretion [None]
